FAERS Safety Report 9663818 (Version 2)
Quarter: 2013Q4

REPORT INFORMATION
  Report Type: Spontaneous
  Country: US (occurrence: US)
  Receive Date: 20131101
  Receipt Date: 20131115
  Transmission Date: 20140711
  Serious: Yes (Death)
  Sender: FDA-Public Use
  Company Number: US-AMGEN-USASP2013076345

PATIENT
  Age: 92 Year
  Sex: Female

DRUGS (6)
  1. PROLIA [Suspect]
     Indication: OSTEOPOROSIS POSTMENOPAUSAL
     Dosage: 60 MG, Q6MO
     Route: 030
     Dates: start: 20130618
  2. NORVASC [Concomitant]
     Indication: HYPERTENSION
     Dosage: 10 MG, QD
     Route: 048
  3. COZAAR [Concomitant]
     Indication: HYPERTENSION
     Dosage: 5 MG, QD
     Route: 048
  4. MECLIZINE                          /00072801/ [Concomitant]
     Indication: NEURITIS
     Dosage: 25 MG, TID
     Route: 048
  5. HCT [Concomitant]
     Indication: HYPERTENSION
     Dosage: 25 MG, QD
     Route: 048
  6. ARICEPT [Concomitant]
     Indication: DEMENTIA
     Dosage: 5 MG, QD
     Route: 048

REACTIONS (2)
  - Cardiac arrest [Fatal]
  - Incorrect route of drug administration [Unknown]
